FAERS Safety Report 13892429 (Version 1)
Quarter: 2017Q3

REPORT INFORMATION
  Report Type: Report from Study
  Country: US (occurrence: US)
  Receive Date: 20170822
  Receipt Date: 20170822
  Transmission Date: 20171127
  Serious: Yes (Death, Hospitalization)
  Sender: FDA-Public Use
  Company Number: US-BAYER-2017-154958

PATIENT
  Age: 94 Year
  Sex: Female

DRUGS (2)
  1. CLOPIDOGREL [Suspect]
     Active Substance: CLOPIDOGREL BISULFATE
  2. ASPIRIN. [Suspect]
     Active Substance: ASPIRIN

REACTIONS (4)
  - Traumatic intracranial haemorrhage [Fatal]
  - Fall [Fatal]
  - Labelled drug-drug interaction medication error [Fatal]
  - Drug administration error [Fatal]
